FAERS Safety Report 16242667 (Version 4)
Quarter: 2020Q3

REPORT INFORMATION
  Report Type: Spontaneous
  Country: FI (occurrence: FI)
  Receive Date: 20190426
  Receipt Date: 20200918
  Transmission Date: 20201102
  Serious: Yes (Death, Other)
  Sender: FDA-Public Use
  Company Number: PHHY2019FI095225

PATIENT
  Age: 31 Year
  Sex: Female

DRUGS (9)
  1. CITALOPRAM [Suspect]
     Active Substance: CITALOPRAM HYDROBROMIDE
     Indication: COMPLETED SUICIDE
  2. CARBAMAZEPINE. [Suspect]
     Active Substance: CARBAMAZEPINE
     Indication: DRUG INTERACTION
     Dosage: UNK
     Route: 065
  3. METHADONE [Suspect]
     Active Substance: METHADONE HYDROCHLORIDE
     Indication: PRODUCT USED FOR UNKNOWN INDICATION
     Dosage: UNK
     Route: 065
  4. CAFFEINE. [Suspect]
     Active Substance: CAFFEINE
     Indication: PRODUCT USED FOR UNKNOWN INDICATION
     Dosage: UNK
     Route: 065
  5. CITALOPRAM [Suspect]
     Active Substance: CITALOPRAM HYDROBROMIDE
     Indication: DRUG INEFFECTIVE
     Dosage: UNK
     Route: 065
  6. OXAZEPAM. [Suspect]
     Active Substance: OXAZEPAM
     Indication: PRODUCT USED FOR UNKNOWN INDICATION
     Dosage: UNK
     Route: 065
  7. CARBAMAZEPINE. [Interacting]
     Active Substance: CARBAMAZEPINE
     Indication: COMPLETED SUICIDE
  8. DEXTROPROPOXYPHENE [Interacting]
     Active Substance: PROPOXYPHENE HYDROCHLORIDE
     Indication: DRUG INTERACTION
     Dosage: UNK
     Route: 065
  9. DEXTROPROPOXYPHENE [Interacting]
     Active Substance: PROPOXYPHENE HYDROCHLORIDE
     Indication: COMPLETED SUICIDE

REACTIONS (7)
  - Drug interaction [Fatal]
  - Completed suicide [Fatal]
  - Suicidal ideation [Fatal]
  - Toxicity to various agents [Fatal]
  - Drug ineffective [Fatal]
  - Off label use [Unknown]
  - Electrocardiogram QT prolonged [Fatal]
